FAERS Safety Report 7267268-8 (Version None)
Quarter: 2011Q1

REPORT INFORMATION
  Report Type: 
  Country: None (occurrence: None)
  Receive Date: 20110121
  Receipt Date: 20110110
  Transmission Date: 20110831
  Serious: Yes (Other)
  Sender: FDA-Public Use
  Company Number: 777633

PATIENT
  Age: 58 Year
  Sex: Female

DRUGS (6)
  1. IRINOTECAN HYDROCHLORIDE [Suspect]
     Indication: CHEMOTHERAPY
     Dosage: 280 MG MILLIGRAM(S), INTRAVENOUS
     Route: 042
     Dates: start: 20100215, end: 20100215
  2. ATROPINE SULFATE [Concomitant]
  3. DEXAMETHASONE [Concomitant]
  4. ZOFRAN [Concomitant]
  5. (5-FU /00098801/) [Concomitant]
  6. (LEDERFOLIN) [Concomitant]

REACTIONS (7)
  - PARAESTHESIA [None]
  - SKIN REACTION [None]
  - PARAESTHESIA ORAL [None]
  - ERYTHEMA [None]
  - BLISTER [None]
  - PRURITUS [None]
  - LARYNGOSPASM [None]
